FAERS Safety Report 9379607 (Version 1)
Quarter: 2013Q3

REPORT INFORMATION
  Report Type: Spontaneous
  Country: US (occurrence: US)
  Receive Date: 20130702
  Receipt Date: 20130702
  Transmission Date: 20140515
  Serious: Yes (Other)
  Sender: FDA-Public Use
  Company Number: PHEH2013US013878

PATIENT
  Sex: Female

DRUGS (7)
  1. DIOVAN [Suspect]
     Dosage: 160 MG, UNK
  2. ADVAIR [Concomitant]
  3. POTASSIUM [Concomitant]
  4. RANITIDINE [Concomitant]
     Dosage: 150 MG, BID
  5. LEVOTHYROXINE [Concomitant]
     Dosage: 125 MG
  6. GLIMEPIRIDE [Concomitant]
     Dosage: 1 MG
  7. IRON [Concomitant]
     Dosage: 65 MG, BID

REACTIONS (10)
  - Anaemia [Unknown]
  - Muscle spasms [Unknown]
  - Dry mouth [Unknown]
  - Arthralgia [Unknown]
  - Vertigo [Unknown]
  - Micturition disorder [Unknown]
  - Chest discomfort [Unknown]
  - Muscular weakness [Unknown]
  - Palpitations [Unknown]
  - Rash pruritic [Unknown]
